FAERS Safety Report 9303574 (Version 2)
Quarter: 2013Q3

REPORT INFORMATION
  Report Type: Spontaneous
  Country: BR (occurrence: BR)
  Receive Date: 20130522
  Receipt Date: 20130723
  Transmission Date: 20140515
  Serious: Yes (Other)
  Sender: FDA-Public Use
  Company Number: PHHY2013BR050725

PATIENT
  Age: 13 Year
  Sex: Male
  Weight: 50 kg

DRUGS (1)
  1. RITALIN LA [Suspect]
     Indication: ATTENTION DEFICIT/HYPERACTIVITY DISORDER
     Dosage: 1 DF, DAILY
     Route: 048

REACTIONS (4)
  - Cardiomyopathy [Recovered/Resolved]
  - Chest pain [Recovered/Resolved]
  - Blood growth hormone increased [Recovered/Resolved]
  - Decreased appetite [Recovered/Resolved]
